FAERS Safety Report 21837633 (Version 1)
Quarter: 2023Q1

REPORT INFORMATION
  Report Type: Spontaneous
  Country: US (occurrence: None)
  Receive Date: 20230106
  Receipt Date: 20230106
  Transmission Date: 20230417
  Serious: No
  Sender: FDA-Public Use
  Company Number: None

PATIENT
  Age: 74 Year
  Sex: Female

DRUGS (1)
  1. OTEZLA [Suspect]
     Active Substance: APREMILAST
     Indication: Behcet^s syndrome
     Dosage: OTHER QUANTITY : TAKE 2 TABLET;?OTHER FREQUENCY : 2X D APPOX 12H APA;?
     Route: 048
     Dates: start: 202205

REACTIONS (2)
  - Medical procedure [None]
  - Therapy interrupted [None]
